FAERS Safety Report 8857463 (Version 1)
Quarter: 2012Q4

REPORT INFORMATION
  Report Type: 
  Country: CL (occurrence: CL)
  Receive Date: 20121024
  Receipt Date: 20121024
  Transmission Date: 20130627
  Serious: Yes (Hospitalization, Other)
  Sender: FDA-Public Use
  Company Number: CL-ELI_LILLY_AND_COMPANY-CL201210004599

PATIENT
  Age: 49 Year
  Sex: Female

DRUGS (2)
  1. OLANZAPINE [Suspect]
     Dosage: 5 mg, each evening
  2. LITHIUM [Concomitant]
     Dosage: 900 mg, qd

REACTIONS (3)
  - Parkinsonism [Recovering/Resolving]
  - Bipolar disorder [Recovering/Resolving]
  - Drug withdrawal syndrome [Recovering/Resolving]
